FAERS Safety Report 9257473 (Version 3)
Quarter: 2013Q4

REPORT INFORMATION
  Report Type: Spontaneous
  Country: US (occurrence: US)
  Receive Date: 20130426
  Receipt Date: 20131001
  Transmission Date: 20140711
  Serious: Yes (Hospitalization, Disabling)
  Sender: FDA-Public Use
  Company Number: US-ASTRAZENECA-2013SE27679

PATIENT
  Age: 16895 Day
  Sex: Male
  Weight: 110.2 kg

DRUGS (16)
  1. NEXIUM [Suspect]
     Indication: GASTRITIS
     Dosage: TWICE
     Route: 048
     Dates: start: 1996, end: 2012
  2. NEXIUM [Suspect]
     Indication: GASTROOESOPHAGEAL REFLUX DISEASE
     Dosage: TWICE
     Route: 048
     Dates: start: 1996, end: 2012
  3. NEXIUM [Suspect]
     Indication: GASTRITIS
     Route: 048
     Dates: start: 2004
  4. NEXIUM [Suspect]
     Indication: GASTROOESOPHAGEAL REFLUX DISEASE
     Route: 048
     Dates: start: 2004
  5. NEXIUM [Suspect]
     Indication: GASTRITIS
     Route: 048
     Dates: start: 20090819
  6. NEXIUM [Suspect]
     Indication: GASTROOESOPHAGEAL REFLUX DISEASE
     Route: 048
     Dates: start: 20090819
  7. PRILOSEC [Suspect]
     Route: 048
     Dates: start: 200806, end: 200908
  8. TUMS [Concomitant]
  9. ROLAIDS [Concomitant]
  10. MYLANTA [Concomitant]
  11. POTASSIUM [Concomitant]
  12. ATENOLOL [Concomitant]
  13. HCTZ [Concomitant]
  14. ZOLOFT [Concomitant]
     Indication: DEPRESSION
  15. ALBUTEROL [Concomitant]
     Indication: ASTHMA
     Dosage: MDI PRN
  16. ULTRAM [Concomitant]
     Indication: PAIN

REACTIONS (9)
  - Road traffic accident [Unknown]
  - Osteoporosis [Unknown]
  - Bone density decreased [Unknown]
  - Multiple fractures [Unknown]
  - Fall [Unknown]
  - Clavicle fracture [Unknown]
  - Rib fracture [Unknown]
  - Anxiety [Unknown]
  - Depression [Unknown]
